FAERS Safety Report 4918455-2 (Version None)
Quarter: 2006Q1

REPORT INFORMATION
  Report Type: 
  Country: None (occurrence: None)
  Receive Date: 20060217
  Receipt Date: 20060217
  Transmission Date: 20060701
  Serious: No
  Sender: FDA-Public Use
  Company Number: None

PATIENT
  Age: 40 Year
  Sex: Female
  Weight: 50.5 kg

DRUGS (7)
  1. ISOVUE-300 [Suspect]
     Indication: COMPUTERISED TOMOGRAM
     Dosage: 130 ML IV  2 ML /SEC X 1 DOSE
     Route: 042
  2. ORAL CONTRAST [Suspect]
  3. CITALOPRAM [Concomitant]
  4. CLONAZEPAM [Concomitant]
  5. XANAX [Concomitant]
  6. MOV [Concomitant]
  7. CALCIUM CARBONATE/VITAMIN D [Concomitant]

REACTIONS (2)
  - FEELING HOT [None]
  - URTICARIA [None]
